FAERS Safety Report 25934335 (Version 2)
Quarter: 2025Q4

REPORT INFORMATION
  Report Type: Spontaneous
  Country: US (occurrence: US)
  Receive Date: 20251017
  Receipt Date: 20251205
  Transmission Date: 20260117
  Serious: No
  Sender: GLAXOSMITHKLINE
  Company Number: US-GSK-US2025AMR125877

PATIENT
  Sex: Female

DRUGS (1)
  1. FLUTICASONE PROPIONATE [Suspect]
     Active Substance: FLUTICASONE PROPIONATE
     Indication: Lymphocytic oesophagitis
     Dosage: UNK, 220 MCG, 12G/120 METERED

REACTIONS (4)
  - Wrong technique in device usage process [Unknown]
  - Off label use [Unknown]
  - Product dose omission issue [Unknown]
  - Product complaint [Unknown]
